FAERS Safety Report 22179821 (Version 3)
Quarter: 2023Q2

REPORT INFORMATION
  Report Type: Spontaneous
  Country: JP (occurrence: JP)
  Receive Date: 20230406
  Receipt Date: 20230419
  Transmission Date: 20230721
  Serious: Yes (Other)
  Sender: FDA-Public Use
  Company Number: JP-BEH-2023157171

PATIENT
  Age: 76 Year
  Sex: Female

DRUGS (4)
  1. HUMAN IMMUNOGLOBULIN G [Suspect]
     Active Substance: HUMAN IMMUNOGLOBULIN G
     Indication: Pemphigoid
     Dosage: 17.5 GRAM FOR 5 DAYS
     Route: 042
  2. PREDNISOLONE [Concomitant]
     Active Substance: PREDNISOLONE
     Indication: Pemphigoid
     Dosage: 1 MILLIGRAM/KILOGRAM, SINGLE
     Route: 065
  3. PLATELETS [Concomitant]
     Active Substance: HUMAN PLATELET, ALLOGENIC
     Dosage: 40 INTERNATIONAL UNIT, TOT
     Route: 065
  4. DEXAMETHASONE [Concomitant]
     Active Substance: DEXAMETHASONE
     Dosage: 40 MILLIGRAM FOR 4 DAYS
     Route: 065

REACTIONS (7)
  - Thrombocytopenia [Unknown]
  - Skin haemorrhage [Unknown]
  - No adverse event [Unknown]
  - Off label use [Unknown]
  - Melaena [Unknown]
  - Shock haemorrhagic [Unknown]
  - Subdural haemorrhage [Unknown]
